FAERS Safety Report 21370073 (Version 1)
Quarter: 2022Q3

REPORT INFORMATION
  Report Type: Spontaneous
  Country: CN (occurrence: CN)
  Receive Date: 20220923
  Receipt Date: 20220923
  Transmission Date: 20221026
  Serious: Yes (Other)
  Sender: FDA-Public Use
  Company Number: CN-PFIZER INC-PV202200068333

PATIENT
  Age: 66 Year
  Sex: Male

DRUGS (7)
  1. TIGECYCLINE [Suspect]
     Active Substance: TIGECYCLINE
     Indication: Infection
     Dosage: 50 MG, 2X/DAY
     Route: 041
     Dates: start: 20220903, end: 20220905
  2. SODIUM CHLORIDE [Concomitant]
     Active Substance: SODIUM CHLORIDE
     Indication: Vehicle solution use
     Dosage: 100 ML, 2X/DAY
     Route: 041
     Dates: start: 20220831, end: 20220905
  3. SODIUM CHLORIDE [Concomitant]
     Active Substance: SODIUM CHLORIDE
     Dosage: 100 ML, 2X/DAY
     Route: 041
     Dates: start: 20220903, end: 20220905
  4. SOMATOSTATIN [Concomitant]
     Active Substance: SOMATOSTATIN
     Indication: Gastrointestinal haemorrhage
     Dosage: 3 MG, 2X/DAY
     Route: 041
     Dates: start: 20220831, end: 20220905
  5. ORNITHINE ASPARTATE [Concomitant]
     Active Substance: ORNITHINE ASPARTATE
     Indication: Hepatobiliary disorder prophylaxis
     Dosage: 10 G, 1X/DAY
     Route: 041
     Dates: start: 20220822, end: 20220905
  6. STERILE WATER [Concomitant]
     Active Substance: WATER
     Indication: Vehicle solution use
     Dosage: 10 ML, 1X/DAY
     Route: 041
     Dates: start: 20220822, end: 20220905
  7. DEXTROSE [Concomitant]
     Active Substance: DEXTROSE
     Indication: Vehicle solution use
     Dosage: 500 ML, 1X/DAY
     Route: 041
     Dates: start: 20220822, end: 20220905

REACTIONS (4)
  - Coagulopathy [Recovering/Resolving]
  - Prothrombin time prolonged [Recovering/Resolving]
  - Nausea [Recovering/Resolving]
  - Vomiting [Recovering/Resolving]

NARRATIVE: CASE EVENT DATE: 20220905
